FAERS Safety Report 7265085-6 (Version None)
Quarter: 2011Q1

REPORT INFORMATION
  Report Type: 
  Country: None (occurrence: None)
  Receive Date: 20110131
  Receipt Date: 20110124
  Transmission Date: 20110831
  Serious: Yes (Hospitalization)
  Sender: FDA-Public Use
  Company Number: VE-ABBOTT-11P-178-0700569-00

PATIENT
  Sex: Female
  Weight: 66 kg

DRUGS (1)
  1. HUMIRA [Suspect]
     Indication: PSORIATIC ARTHROPATHY
     Route: 058
     Dates: start: 20080728, end: 20101229

REACTIONS (4)
  - BLOOD GLUCOSE ABNORMAL [None]
  - LOCALISED INFECTION [None]
  - THROMBOSIS [None]
  - BLOOD PRESSURE ABNORMAL [None]
